FAERS Safety Report 8396917-6 (Version None)
Quarter: 2012Q2

REPORT INFORMATION
  Report Type: 
  Country: None (occurrence: None)
  Receive Date: 20120530
  Receipt Date: 20120522
  Transmission Date: 20120825
  Serious: Yes (Hospitalization, Disabling, Other)
  Sender: FDA-Public Use
  Company Number: DE-ABBOTT-12P-062-0933024-00

PATIENT
  Age: 30 Year
  Sex: Female

DRUGS (1)
  1. HUMIRA [Suspect]
     Indication: PSORIASIS
     Route: 058
     Dates: start: 20110201, end: 20111201

REACTIONS (9)
  - MASTOIDITIS [None]
  - SARCOIDOSIS [None]
  - DEAFNESS [None]
  - AUTOIMMUNE DISORDER [None]
  - OTITIS MEDIA [None]
  - EAR PAIN [None]
  - INFLAMMATION [None]
  - SINUSITIS [None]
  - PHARYNGITIS [None]
